FAERS Safety Report 5096953-1 (Version None)
Quarter: 2006Q3

REPORT INFORMATION
  Report Type: 
  Country: None (occurrence: None)
  Receive Date: 20060906
  Receipt Date: 20060831
  Transmission Date: 20061208
  Serious: Yes (Life-Threatening, Hospitalization)
  Sender: FDA-Public Use
  Company Number: 2006PK01798

PATIENT
  Age: 44 Year
  Sex: Female
  Weight: 58 kg

DRUGS (6)
  1. SEROQUEL [Suspect]
     Indication: SCHIZOPHRENIA, PARANOID TYPE
     Route: 048
     Dates: start: 20060227, end: 20060227
  2. SEROQUEL [Suspect]
     Route: 048
     Dates: start: 20060228, end: 20060228
  3. SEROQUEL [Suspect]
     Route: 048
     Dates: start: 20060301, end: 20060301
  4. SEROQUEL [Suspect]
     Route: 048
     Dates: start: 20060302, end: 20060302
  5. SEROQUEL [Suspect]
     Route: 048
     Dates: start: 20060303, end: 20060303
  6. SEROQUEL [Suspect]
     Route: 048
     Dates: start: 20060313

REACTIONS (2)
  - HALLUCINATION, AUDITORY [None]
  - SUICIDAL IDEATION [None]
